FAERS Safety Report 20850900 (Version 1)
Quarter: 2022Q2

REPORT INFORMATION
  Report Type: Other
  Country: None (occurrence: US)
  Receive Date: 20220519
  Receipt Date: 20220519
  Transmission Date: 20220720
  Serious: Yes (Other)
  Sender: FDA-Public Use
  Company Number: US-AustarPharma, LLC-2128966

PATIENT
  Age: 85 Year
  Sex: Female

DRUGS (1)
  1. ALENDRONATE SODIUM [Suspect]
     Active Substance: ALENDRONATE SODIUM
     Indication: Osteoarthritis
     Route: 048
     Dates: start: 20220324, end: 20220331

REACTIONS (1)
  - Oesophageal irritation [Recovering/Resolving]

NARRATIVE: CASE EVENT DATE: 20220324
